FAERS Safety Report 18345979 (Version 2)
Quarter: 2020Q4

REPORT INFORMATION
  Report Type: Spontaneous
  Country: US (occurrence: US)
  Receive Date: 20201005
  Receipt Date: 20201015
  Transmission Date: 20210114
  Serious: Yes (Other)
  Sender: FDA-Public Use
  Company Number: US-MALLINCKRODT-T202004575

PATIENT
  Age: 0 Year
  Sex: Male

DRUGS (2)
  1. PREDNISOLONE. [Suspect]
     Active Substance: PREDNISOLONE
     Indication: PRODUCT USED FOR UNKNOWN INDICATION
     Dosage: UNK
     Route: 065
     Dates: start: 20200928
  2. H.P. ACTHAR [Suspect]
     Active Substance: CORTICOTROPIN
     Indication: INFANTILE SPASMS
     Dosage: 0.7 MILLILITER, QD
     Route: 065
     Dates: start: 20200909, end: 20200927

REACTIONS (9)
  - Infantile spasms [Unknown]
  - Blood pressure increased [Not Recovered/Not Resolved]
  - Infantile spitting up [Unknown]
  - Rash [Recovered/Resolved]
  - Therapeutic product effect incomplete [Unknown]
  - Vomiting projectile [Not Recovered/Not Resolved]
  - Product physical consistency issue [Unknown]
  - Sluggishness [Not Recovered/Not Resolved]
  - Decreased appetite [Not Recovered/Not Resolved]

NARRATIVE: CASE EVENT DATE: 2020
